FAERS Safety Report 16732236 (Version 7)
Quarter: 2021Q1

REPORT INFORMATION
  Report Type: Report from Study
  Country: US (occurrence: US)
  Receive Date: 20190822
  Receipt Date: 20210327
  Transmission Date: 20210419
  Serious: Yes (Hospitalization, Other)
  Sender: FDA-Public Use
  Company Number: PHEH2019US034616

PATIENT
  Age: 7 Month
  Sex: Male
  Weight: 6.1 kg

DRUGS (1)
  1. ZOLGENSMA [Suspect]
     Active Substance: ONASEMNOGENE ABEPARVOVEC-XIOI
     Indication: SPINAL MUSCULAR ATROPHY
     Dosage: UNK UNK, ONCE/SINGLE (1.1 X 10 TO THE 14TH VECTOR GENOMES (VG) PER KG OF BODY WEIGHT)
     Route: 042
     Dates: start: 20190726, end: 20190726

REACTIONS (6)
  - Rhinovirus infection [Recovered/Resolved]
  - Pneumonia [Recovered/Resolved]
  - Nasopharyngitis [Unknown]
  - Cough [Recovered/Resolved]
  - Cough [Unknown]
  - Vomiting [Recovered/Resolved]

NARRATIVE: CASE EVENT DATE: 20190814
